FAERS Safety Report 12050652 (Version 1)
Quarter: 2016Q1

REPORT INFORMATION
  Report Type: Spontaneous
  Country: US (occurrence: US)
  Receive Date: 20160209
  Receipt Date: 20160209
  Transmission Date: 20160526
  Serious: Yes (Death, Hospitalization)
  Sender: FDA-Public Use
  Company Number: US-CIPLA LTD.-2016US00893

PATIENT

DRUGS (3)
  1. CARBOPLATIN. [Suspect]
     Active Substance: CARBOPLATIN
     Indication: TONGUE NEOPLASM MALIGNANT STAGE UNSPECIFIED
     Dosage: AUC 6 MG/ML MIN ON DAY 1, EVERY 21 DAYS
     Route: 042
  2. PACLITAXEL. [Suspect]
     Active Substance: PACLITAXEL
     Indication: TONGUE NEOPLASM MALIGNANT STAGE UNSPECIFIED
     Dosage: 175 MG/M2, ON DAY 1, EVERY 21 DAYS
     Route: 042
  3. AFATINIB [Suspect]
     Active Substance: AFATINIB
     Indication: TONGUE NEOPLASM MALIGNANT STAGE UNSPECIFIED
     Dosage: 30 MG, QD FOR 21 DAYS
     Route: 048

REACTIONS (13)
  - Pulseless electrical activity [Recovered/Resolved]
  - Ventricular fibrillation [Recovered/Resolved]
  - Cough [Not Recovered/Not Resolved]
  - Loss of consciousness [Not Recovered/Not Resolved]
  - Shock [Recovered/Resolved]
  - Dyspnoea [Not Recovered/Not Resolved]
  - Pyrexia [Not Recovered/Not Resolved]
  - Fatigue [Not Recovered/Not Resolved]
  - Syncope [Not Recovered/Not Resolved]
  - Abdominal pain [Not Recovered/Not Resolved]
  - Lung consolidation [Fatal]
  - Diarrhoea [Not Recovered/Not Resolved]
  - Pancytopenia [Not Recovered/Not Resolved]
